FAERS Safety Report 6715400-4 (Version None)
Quarter: 2010Q2

REPORT INFORMATION
  Report Type: 
  Country: None (occurrence: None)
  Receive Date: 20100507
  Receipt Date: 20100426
  Transmission Date: 20101027
  Serious: Yes (Hospitalization)
  Sender: FDA-Public Use
  Company Number: FR-JNJFOC-20100406481

PATIENT
  Sex: Male

DRUGS (12)
  1. DORIBAX [Suspect]
     Indication: DRUG USE FOR UNKNOWN INDICATION
     Route: 041
  2. KARDEGIC [Concomitant]
  3. SIMVASTATIN [Concomitant]
  4. AMIKIN [Concomitant]
  5. TAMSULOSIN HCL [Concomitant]
  6. TAZOCILLINE [Concomitant]
  7. PIPERACILLINE [Concomitant]
  8. CIPROFLOXACIN HCL [Concomitant]
  9. CIPROFLOXACIN HCL [Concomitant]
  10. CEFTRIAXONE [Concomitant]
  11. FLAGYL [Concomitant]
  12. GENTAMICIN [Concomitant]

REACTIONS (1)
  - AGRANULOCYTOSIS [None]
